FAERS Safety Report 24623772 (Version 3)
Quarter: 2024Q4

REPORT INFORMATION
  Report Type: Report from Study
  Country: DE (occurrence: DE)
  Receive Date: 20241115
  Receipt Date: 20241217
  Transmission Date: 20250114
  Serious: Yes (Other)
  Sender: TAKEDA
  Company Number: DE-TAKEDA-2024TUS115398

PATIENT
  Age: 29 Year
  Sex: Female

DRUGS (3)
  1. VONICOG ALFA [Suspect]
     Active Substance: VONICOG ALFA
     Indication: Von Willebrand^s disease
     Dosage: UNK UNK, QD
     Dates: start: 20241010
  2. VONICOG ALFA [Suspect]
     Active Substance: VONICOG ALFA
     Dosage: UNK
  3. VONICOG ALFA [Suspect]
     Active Substance: VONICOG ALFA
     Dosage: UNK

REACTIONS (1)
  - Epistaxis [Recovered/Resolved]

NARRATIVE: CASE EVENT DATE: 20241111
